FAERS Safety Report 6247576-X (Version None)
Quarter: 2009Q2

REPORT INFORMATION
  Report Type: 
  Country: None (occurrence: None)
  Receive Date: 20090626
  Receipt Date: 20090615
  Transmission Date: 20091009
  Serious: Yes (Life-Threatening, Hospitalization, Disabling)
  Sender: FDA-Public Use
  Company Number: US-MERCK-0905USA02242

PATIENT
  Age: 65 Year
  Sex: Male

DRUGS (9)
  1. ACTOS [Concomitant]
     Route: 065
  2. GLUCOPHAGE [Concomitant]
     Route: 065
  3. SYNTHROID [Concomitant]
     Route: 065
  4. PROCARDIA [Concomitant]
     Route: 065
  5. METOPROLOL [Concomitant]
     Route: 065
  6. PREVACID [Concomitant]
     Route: 065
  7. GLIPIZIDE [Concomitant]
     Route: 065
  8. AVALIDE [Concomitant]
     Route: 065
  9. JANUVIA [Suspect]
     Indication: DIABETES MELLITUS
     Route: 048
     Dates: start: 20090222, end: 20090508

REACTIONS (8)
  - BLOOD GLUCOSE FLUCTUATION [None]
  - CONFUSIONAL STATE [None]
  - FATIGUE [None]
  - GENERALISED OEDEMA [None]
  - HYPOGLYCAEMIA [None]
  - RENAL DISORDER [None]
  - RENAL FAILURE ACUTE [None]
  - TUBULOINTERSTITIAL NEPHRITIS [None]
